FAERS Safety Report 23396633 (Version 1)
Quarter: 2024Q1

REPORT INFORMATION
  Report Type: Spontaneous
  Country: CN (occurrence: CN)
  Receive Date: 20240112
  Receipt Date: 20240112
  Transmission Date: 20240410
  Serious: Yes (Other)
  Sender: FDA-Public Use
  Company Number: CN-SA-SAC20240110001479

PATIENT
  Age: 71 Year
  Sex: Female

DRUGS (3)
  1. ELOXATIN [Suspect]
     Active Substance: OXALIPLATIN
     Indication: Neoplasm malignant
     Dosage: 180 MG, QD
     Route: 041
     Dates: start: 20240101, end: 20240103
  2. PALONOSETRON HYDROCHLORIDE [Suspect]
     Active Substance: PALONOSETRON HYDROCHLORIDE
     Indication: Neoplasm malignant
     Dosage: 0.25 MG, QD
     Route: 041
     Dates: start: 20240101, end: 20240105
  3. SODIUM CHLORIDE [Concomitant]
     Active Substance: SODIUM CHLORIDE
     Indication: Neoplasm malignant
     Dosage: 250 ML, QD
     Route: 041
     Dates: start: 20240101, end: 20240105

REACTIONS (4)
  - Cardiotoxicity [Recovering/Resolving]
  - Chest pain [Recovering/Resolving]
  - Gastrointestinal disorder [Recovering/Resolving]
  - Nausea [Recovering/Resolving]

NARRATIVE: CASE EVENT DATE: 20240104
